FAERS Safety Report 6010788-4 (Version None)
Quarter: 2008Q4

REPORT INFORMATION
  Report Type: 
  Country: None (occurrence: None)
  Receive Date: 20081218
  Receipt Date: 20081208
  Transmission Date: 20090506
  Serious: Yes (Other)
  Sender: FDA-Public Use
  Company Number: PHHY2008MX31496

PATIENT
  Sex: Female

DRUGS (1)
  1. TRILEPTAL [Suspect]
     Indication: EPILEPSY
     Dosage: 1/8 TABLET PER DAY

REACTIONS (6)
  - DEPRESSION [None]
  - HEADACHE [None]
  - MENSTRUAL DISORDER [None]
  - NAUSEA [None]
  - PAIN IN EXTREMITY [None]
  - VISUAL IMPAIRMENT [None]
